FAERS Safety Report 7035860-1 (Version None)
Quarter: 2010Q4

REPORT INFORMATION
  Report Type: 
  Country: None (occurrence: None)
  Receive Date: 20101008
  Receipt Date: 20100928
  Transmission Date: 20110411
  Serious: Yes (Death)
  Sender: FDA-Public Use
  Company Number: GXKR2010CN10979

PATIENT
  Age: 24 Year
  Sex: Male

DRUGS (1)
  1. THIAMAZOLE (NGX) [Suspect]
     Indication: HYPERTHYROIDISM
     Dosage: 20 MG/DAY

REACTIONS (19)
  - ACUTE HEPATIC FAILURE [None]
  - CAROTID PULSE ABNORMAL [None]
  - CHOLESTASIS [None]
  - DIARRHOEA [None]
  - ENCEPHALOPATHY [None]
  - FATIGUE [None]
  - HAEMODIALYSIS [None]
  - HYPERHIDROSIS [None]
  - HYPOTENSION [None]
  - HYPOXIA [None]
  - JAUNDICE [None]
  - JUGULAR VEIN DISTENSION [None]
  - METABOLIC ACIDOSIS [None]
  - MULTI-ORGAN FAILURE [None]
  - OEDEMA PERIPHERAL [None]
  - PLASMAPHERESIS [None]
  - SKIN DEPIGMENTATION [None]
  - TREMOR [None]
  - URINE FLOW DECREASED [None]
